FAERS Safety Report 5698044-5 (Version None)
Quarter: 2008Q2

REPORT INFORMATION
  Report Type: 
  Country: None (occurrence: None)
  Receive Date: 20080404
  Receipt Date: 20080404
  Transmission Date: 20081010
  Serious: Yes (Life-Threatening)
  Sender: FDA-Public Use
  Company Number: None

PATIENT
  Sex: Male

DRUGS (2)
  1. VANCOMYCIN [Suspect]
     Indication: ANTIBIOTIC PROPHYLAXIS
     Dosage: LESS THAN 5 ML ONCE IV
     Route: 042
     Dates: start: 20080403, end: 20080403
  2. VANCOMYCIN [Suspect]
     Indication: PREOPERATIVE CARE
     Dosage: LESS THAN 5 ML ONCE IV
     Route: 042
     Dates: start: 20080403, end: 20080403

REACTIONS (3)
  - DYSPNOEA [None]
  - HYPOTENSION [None]
  - URTICARIA [None]
